FAERS Safety Report 4323238-0 (Version None)
Quarter: 2004Q1

REPORT INFORMATION
  Report Type: 
  Country: None (occurrence: None)
  Receive Date: 20040324
  Receipt Date: 20040324
  Transmission Date: 20041129
  Serious: Yes (Life-Threatening, Hospitalization)
  Sender: FDA-Public Use
  Company Number: None

PATIENT
  Age: 22 Year
  Sex: Female
  Weight: 52.1637 kg

DRUGS (2)
  1. WELLBUTRIN [Suspect]
     Indication: DEPRESSION
     Dosage: 1 DAY MORNIN ORAL
     Route: 048
     Dates: start: 20001001, end: 20001023
  2. PAXIL [Suspect]
     Dosage: 1 DAY EVENIN ORAL
     Route: 048
     Dates: start: 20001010, end: 20001023

REACTIONS (5)
  - FALL [None]
  - HEAD INJURY [None]
  - INTENTIONAL SELF-INJURY [None]
  - NERVOUSNESS [None]
  - SUICIDE ATTEMPT [None]
